FAERS Safety Report 6419448-9 (Version None)
Quarter: 2009Q4

REPORT INFORMATION
  Report Type: 
  Country: None (occurrence: None)
  Receive Date: 20091027
  Receipt Date: 20091016
  Transmission Date: 20100525
  Serious: Yes (Hospitalization)
  Sender: FDA-Public Use
  Company Number: AXC-2009-000055

PATIENT
  Age: 32 Year
  Sex: Female

DRUGS (1)
  1. MESALAMINE [Suspect]
     Indication: COLITIS ULCERATIVE

REACTIONS (7)
  - HAEMOGLOBIN ABNORMAL [None]
  - INTERSTITIAL LUNG DISEASE [None]
  - MEAN CELL HAEMOGLOBIN CONCENTRATION ABNORMAL [None]
  - MEAN CELL VOLUME ABNORMAL [None]
  - PLATELET COUNT ABNORMAL [None]
  - RED BLOOD CELL COUNT ABNORMAL [None]
  - WHITE BLOOD CELL COUNT ABNORMAL [None]
